FAERS Safety Report 4766256-0 (Version None)
Quarter: 2005Q3

REPORT INFORMATION
  Report Type: 
  Country: None (occurrence: None)
  Receive Date: 20050909
  Receipt Date: 20050823
  Transmission Date: 20060218
  Serious: Yes (Hospitalization)
  Sender: FDA-Public Use
  Company Number: 2005EU001903

PATIENT
  Age: 46 Year
  Sex: Male

DRUGS (3)
  1. FK506(TACROLIMUS) CAPSULE [Suspect]
     Indication: RENAL TRANSPLANT
     Dosage: 10.00 MG, UNKNOWN/D, ORAL
     Route: 048
     Dates: start: 20050714
  2. SIROLIMUS (SIROLIMUS) [Suspect]
     Indication: RENAL TRANSPLANT
     Dosage: UNK, UNKNOWN/D, UNK
     Route: 065
     Dates: start: 20050714
  3. CORTICOSTEROIDS [Suspect]
     Indication: RENAL TRANSPLANT
     Dosage: UNK, UNKNOWN/D, UNK
     Route: 065
     Dates: start: 20050714

REACTIONS (2)
  - ORCHITIS NONINFECTIVE [None]
  - TESTICULAR NECROSIS [None]
